FAERS Safety Report 12809932 (Version 1)
Quarter: 2016Q4

REPORT INFORMATION
  Report Type: Spontaneous
  Country: US (occurrence: US)
  Receive Date: 20161004
  Receipt Date: 20161004
  Transmission Date: 20170207
  Serious: Yes (Other)
  Sender: FDA-Public Use
  Company Number: None

PATIENT
  Age: 62 Year
  Sex: Female

DRUGS (1)
  1. HUMULIN NOS [Suspect]
     Active Substance: INSULIN HUMAN
     Indication: DIABETES MELLITUS
     Route: 058
     Dates: start: 20160505, end: 20161003

REACTIONS (4)
  - Blood glucose increased [None]
  - Drug dispensing error [None]
  - Poor quality drug administered [None]
  - Product deposit [None]

NARRATIVE: CASE EVENT DATE: 20161003
